FAERS Safety Report 9345823 (Version 2)
Quarter: 2013Q2

REPORT INFORMATION
  Report Type: Spontaneous
  Country: JP (occurrence: JP)
  Receive Date: 20130613
  Receipt Date: 20130620
  Transmission Date: 20140414
  Serious: Yes (Other)
  Sender: FDA-Public Use
  Company Number: JP-OTSUKA-JP-2013-12153

PATIENT
  Age: 75 Year
  Sex: Male

DRUGS (1)
  1. PLETAAL [Suspect]
     Route: 048

REACTIONS (1)
  - Parkinson^s disease [Unknown]
